FAERS Safety Report 12295061 (Version 1)
Quarter: 2016Q2

REPORT INFORMATION
  Report Type: Report from Study
  Country: JP (occurrence: JP)
  Receive Date: 20160422
  Receipt Date: 20160422
  Transmission Date: 20160815
  Serious: Yes (Hospitalization, Other)
  Sender: FDA-Public Use
  Company Number: JP-GLAXOSMITHKLINE-A200902503

PATIENT
  Age: 35 Year
  Sex: Male

DRUGS (14)
  1. FOSAMPRENAVIR [Suspect]
     Active Substance: FOSAMPRENAVIR
     Indication: HIV INFECTION
     Route: 048
     Dates: start: 20080216, end: 20110311
  2. LAMIVUDINE. [Suspect]
     Active Substance: LAMIVUDINE
     Indication: HIV INFECTION
     Dosage: 300 MG, QD
     Route: 048
     Dates: start: 20050330, end: 20080215
  3. REYATAZ [Suspect]
     Active Substance: ATAZANAVIR SULFATE
     Indication: HIV INFECTION
     Route: 048
     Dates: start: 20050330, end: 20080215
  4. PEGINTERFERON ALFA 2A [Suspect]
     Active Substance: PEGINTERFERON ALFA-2A
     Dosage: UNK
  5. NORVIR [Suspect]
     Active Substance: RITONAVIR
     Indication: HIV INFECTION
     Route: 048
     Dates: start: 20050330, end: 20080215
  6. NORVIR [Suspect]
     Active Substance: RITONAVIR
     Route: 048
     Dates: start: 20080216, end: 20110311
  7. TRUVADA [Suspect]
     Active Substance: EMTRICITABINE\TENOFOVIR DISOPROXIL FUMARATE
     Indication: HIV INFECTION
     Route: 048
     Dates: start: 20080216
  8. ISENTRESS [Suspect]
     Active Substance: RALTEGRAVIR POTASSIUM
     Indication: HIV INFECTION
     Route: 048
     Dates: start: 20110312, end: 20140711
  9. ADVATE [Concomitant]
     Active Substance: ANTIHEMOPHILIC FACTOR, HUMAN RECOMBINANT
     Indication: FACTOR VIII DEFICIENCY
     Route: 051
     Dates: start: 20070721
  10. VIREAD [Suspect]
     Active Substance: TENOFOVIR DISOPROXIL FUMARATE
     Indication: HIV INFECTION
     Route: 048
     Dates: start: 20050330, end: 20080215
  11. STOGAR [Concomitant]
     Active Substance: LAFUTIDINE
     Indication: GASTROOESOPHAGEAL REFLUX DISEASE
     Route: 048
     Dates: end: 20080215
  12. PARIET [Concomitant]
     Active Substance: RABEPRAZOLE SODIUM
     Indication: GASTROOESOPHAGEAL REFLUX DISEASE
     Route: 048
     Dates: start: 20090401
  13. RECOMBINATE [Concomitant]
     Active Substance: ANTIHEMOPHILIC FACTOR, HUMAN RECOMBINANT
     Indication: FACTOR VIII DEFICIENCY
     Route: 051
     Dates: end: 20070720
  14. RIBAVIRIN. [Suspect]
     Active Substance: RIBAVIRIN
     Dosage: UNK

REACTIONS (6)
  - Blood bilirubin increased [Recovered/Resolved]
  - Lipoatrophy [Not Recovered/Not Resolved]
  - Melaena [Recovering/Resolving]
  - Platelet count decreased [Not Recovered/Not Resolved]
  - White blood cell count decreased [Recovered/Resolved]
  - Varices oesophageal [Not Recovered/Not Resolved]

NARRATIVE: CASE EVENT DATE: 20050330
